FAERS Safety Report 10465770 (Version 1)
Quarter: 2014Q3

REPORT INFORMATION
  Report Type: Report from Study
  Country: BR (occurrence: BR)
  Receive Date: 20140921
  Receipt Date: 20140921
  Transmission Date: 20150326
  Serious: Yes (Other)
  Sender: FDA-Public Use
  Company Number: PHHY2014BR122278

PATIENT
  Sex: Female

DRUGS (2)
  1. EXELON [Suspect]
     Active Substance: RIVASTIGMINE TARTRATE
     Indication: DEMENTIA ALZHEIMER^S TYPE
     Dosage: 2 DF, DAILY (ONE ORR TWO CAPSULES)
  2. EXELON PATCH [Suspect]
     Active Substance: RIVASTIGMINE
     Indication: DEMENTIA ALZHEIMER^S TYPE
     Dosage: 4.6 MG, DAILY (ONE PATCH OF 9MG/5CM2 DAILY)
     Route: 062

REACTIONS (4)
  - Diabetes mellitus [Recovering/Resolving]
  - Somnolence [Recovering/Resolving]
  - Osteoarthritis [Recovering/Resolving]
  - Muscle rigidity [Recovering/Resolving]
